FAERS Safety Report 8607848-8 (Version None)
Quarter: 2012Q3

REPORT INFORMATION
  Report Type: 
  Country: None (occurrence: None)
  Receive Date: 20120821
  Receipt Date: 20120820
  Transmission Date: 20120928
  Serious: Yes (Death)
  Sender: FDA-Public Use
  Company Number: PHFR2012GB003117

PATIENT
  Sex: Male

DRUGS (4)
  1. GLICLAZIDE [Concomitant]
     Dosage: 160 MG, UNK
     Route: 048
  2. SENNA [Concomitant]
     Dosage: 2 DF, UNK
     Route: 048
  3. CLOZARIL [Suspect]
     Indication: SCHIZOPHRENIA
     Dosage: 300 MG, UNK
     Route: 048
     Dates: start: 20040623
  4. QUETIAPINE [Concomitant]
     Dosage: 400 MG, UNK
     Route: 048

REACTIONS (1)
  - DEATH [None]
